FAERS Safety Report 12184709 (Version 1)
Quarter: 2016Q1

REPORT INFORMATION
  Report Type: Spontaneous
  Country: US (occurrence: US)
  Receive Date: 20160316
  Receipt Date: 20160316
  Transmission Date: 20160526
  Serious: Yes (Other)
  Sender: FDA-Public Use
  Company Number: US-BAYER-2016-046592

PATIENT
  Sex: Female

DRUGS (1)
  1. MIRENA [Suspect]
     Active Substance: LEVONORGESTREL
     Indication: CONTRACEPTION
     Dosage: 20 MCG/24HR, CONT
     Route: 015
     Dates: start: 2014

REACTIONS (7)
  - Vaginal discharge [Not Recovered/Not Resolved]
  - Weight increased [Not Recovered/Not Resolved]
  - Device issue [Not Recovered/Not Resolved]
  - Frustration tolerance decreased [None]
  - Genital infection fungal [Not Recovered/Not Resolved]
  - Rash [Not Recovered/Not Resolved]
  - Weight loss poor [Not Recovered/Not Resolved]
